FAERS Safety Report 4298003-3 (Version None)
Quarter: 2004Q1

REPORT INFORMATION
  Report Type: 
  Country: None (occurrence: None)
  Receive Date: 20040218
  Receipt Date: 20011002
  Transmission Date: 20041129
  Serious: Yes (Other)
  Sender: FDA-Public Use
  Company Number: US-BRISTOL-MYERS SQUIBB COMPANY-11035664

PATIENT
  Sex: Male

DRUGS (14)
  1. STADOL [Suspect]
     Route: 045
  2. STADOL [Suspect]
     Dosage: ROUTE OF ADMINISTRATION:  INJECTION
  3. LORTAB [Concomitant]
  4. LORCET-HD [Concomitant]
  5. TYLOX [Concomitant]
  6. SOMA [Concomitant]
  7. HYDROXYZINE HCL [Concomitant]
  8. DARVOCET-N 100 [Concomitant]
  9. CLONAZEPAM [Concomitant]
  10. CYCLOBENZAPRINE [Concomitant]
  11. SKELAXIN [Concomitant]
  12. PAMELOR [Concomitant]
  13. ACETAMINOPHEN W/ CODEINE [Concomitant]
  14. HYDROCODONE BITARTRATE [Concomitant]

REACTIONS (1)
  - DEPENDENCE [None]
